FAERS Safety Report 25615718 (Version 1)
Quarter: 2025Q3

REPORT INFORMATION
  Report Type: Spontaneous
  Country: CA (occurrence: CA)
  Receive Date: 20250729
  Receipt Date: 20250729
  Transmission Date: 20251020
  Serious: Yes (Other)
  Sender: TEVA
  Company Number: CA-TEVA-VS-3357190

PATIENT
  Age: 76 Year
  Sex: Female

DRUGS (6)
  1. PACLITAXEL [Suspect]
     Active Substance: PACLITAXEL
     Indication: Neoplasm malignant
     Route: 042
  2. MAGNESIUM [Concomitant]
     Active Substance: MAGNESIUM
     Indication: Product used for unknown indication
  3. ONDANSETRON [Concomitant]
     Active Substance: ONDANSETRON
     Indication: Product used for unknown indication
  4. PIPERACILLIN AND TAZOBACTAM [Concomitant]
     Active Substance: PIPERACILLIN SODIUM\TAZOBACTAM SODIUM
     Indication: Product used for unknown indication
  5. DEXAMETHASONE [Concomitant]
     Active Substance: DEXAMETHASONE
     Indication: Product used for unknown indication
     Route: 065
  6. MORPHINE [Concomitant]
     Active Substance: MORPHINE
     Indication: Product used for unknown indication

REACTIONS (8)
  - Dry throat [Recovered/Resolved]
  - Eructation [Recovered/Resolved]
  - Back pain [Recovered/Resolved]
  - Headache [Recovered/Resolved]
  - Oropharyngeal pain [Recovered/Resolved]
  - Dysphagia [Recovered/Resolved]
  - Nausea [Recovered/Resolved]
  - Abdominal pain [Recovered/Resolved]
